FAERS Safety Report 8155723-8 (Version None)
Quarter: 2012Q1

REPORT INFORMATION
  Report Type: 
  Country: None (occurrence: None)
  Receive Date: 20120222
  Receipt Date: 20120210
  Transmission Date: 20120608
  Serious: Yes (Other)
  Sender: FDA-Public Use
  Company Number: CA-JNJFOC-20120206801

PATIENT
  Sex: Male
  Weight: 114.5 kg

DRUGS (4)
  1. MESALAMINE [Concomitant]
     Route: 065
  2. ASACOL [Concomitant]
     Dosage: 800 (UNITS UNSPECIFIED)
     Route: 065
  3. NEXIUM [Concomitant]
     Dosage: 40  (UNITS UNSPECIFIED)
     Route: 065
  4. REMICADE [Suspect]
     Indication: COLITIS ULCERATIVE
     Route: 042
     Dates: start: 20081029

REACTIONS (5)
  - ABDOMINAL DISCOMFORT [None]
  - BLOOD GLUCOSE INCREASED [None]
  - HEPATIC CONGESTION [None]
  - LIGAMENT SPRAIN [None]
  - DIZZINESS [None]
